FAERS Safety Report 14292860 (Version 2)
Quarter: 2018Q2

REPORT INFORMATION
  Report Type: Report from Study
  Country: IE (occurrence: IE)
  Receive Date: 20171215
  Receipt Date: 20180409
  Transmission Date: 20180711
  Serious: Yes (Hospitalization, Congenital Anomaly, Other)
  Sender: FDA-Public Use
  Company Number: IE-SA-2017SA246903

PATIENT
  Sex: Male
  Weight: 3.82 kg

DRUGS (10)
  1. LANTUS [Suspect]
     Active Substance: INSULIN GLARGINE
     Route: 063
     Dates: start: 20160501
  2. NOVORAPID [Suspect]
     Active Substance: INSULIN ASPART
     Route: 063
     Dates: start: 20170204
  3. ELTROXIN [Concomitant]
     Active Substance: LEVOTHYROXINE
     Route: 063
  4. LANTUS [Suspect]
     Active Substance: INSULIN GLARGINE
     Route: 064
     Dates: end: 20170204
  5. METFORMIN [Suspect]
     Active Substance: METFORMIN HYDROCHLORIDE
     Route: 063
     Dates: start: 20160501, end: 20170204
  6. NOVORAPID [Suspect]
     Active Substance: INSULIN ASPART
     Route: 063
  7. FOLIC ACID. [Concomitant]
     Active Substance: FOLIC ACID
     Route: 063
  8. NOVORAPID [Suspect]
     Active Substance: INSULIN ASPART
     Route: 064
     Dates: start: 20160501, end: 20170204
  9. FOLIC ACID. [Concomitant]
     Active Substance: FOLIC ACID
     Route: 064
     Dates: start: 20160501, end: 20170204
  10. ELTROXIN [Concomitant]
     Active Substance: LEVOTHYROXINE
     Route: 064
     Dates: start: 20160501, end: 20170204

REACTIONS (5)
  - Foetal exposure during pregnancy [Recovered/Resolved]
  - Convulsion neonatal [Recovered/Resolved]
  - Exposure via breast milk [Recovered/Resolved]
  - Ankyloglossia congenital [Recovered/Resolved]
  - Hypoglycaemia neonatal [Recovered/Resolved]

NARRATIVE: CASE EVENT DATE: 20170204
